FAERS Safety Report 19349508 (Version 2)
Quarter: 2021Q3

REPORT INFORMATION
  Report Type: Report from Study
  Country: AU (occurrence: AU)
  Receive Date: 20210531
  Receipt Date: 20210726
  Transmission Date: 20211014
  Serious: Yes (Hospitalization, Other)
  Sender: FDA-Public Use
  Company Number: AU-BIOGEN-2019BI00709861

PATIENT
  Age: 65 Year
  Sex: Female

DRUGS (7)
  1. TECFIDERA [Suspect]
     Active Substance: DIMETHYL FUMARATE
     Indication: MULTIPLE SCLEROSIS
     Dosage: MAINTENANCE DOSE
     Route: 048
     Dates: start: 20150101
  2. TECFIDERA [Suspect]
     Active Substance: DIMETHYL FUMARATE
     Dosage: MAINTENANCE DOSE
     Route: 048
     Dates: start: 20150101, end: 202103
  3. TECFIDERA [Suspect]
     Active Substance: DIMETHYL FUMARATE
     Route: 048
     Dates: start: 20150101
  4. TEGRETOL [Suspect]
     Active Substance: CARBAMAZEPINE
     Indication: TRIGEMINAL NEURALGIA
     Route: 065
  5. TECFIDERA [Suspect]
     Active Substance: DIMETHYL FUMARATE
     Dosage: TITRATION DOSE OF 120MG BD FOR 2 WEEKS
     Route: 048
     Dates: start: 202106
  6. TECFIDERA [Suspect]
     Active Substance: DIMETHYL FUMARATE
     Route: 048
     Dates: start: 20150101, end: 202103
  7. TECFIDERA [Suspect]
     Active Substance: DIMETHYL FUMARATE
     Dosage: MAINTENANCE DOSE
     Route: 048

REACTIONS (15)
  - Somnolence [Unknown]
  - Sensory disturbance [Unknown]
  - Flushing [Not Recovered/Not Resolved]
  - Pain in extremity [Unknown]
  - Prescribed underdose [Recovered/Resolved]
  - Abdominal discomfort [Not Recovered/Not Resolved]
  - Trigeminal neuralgia [Recovered/Resolved]
  - Multiple sclerosis [Not Recovered/Not Resolved]
  - Trismus [Not Recovered/Not Resolved]
  - Hepatic function abnormal [Not Recovered/Not Resolved]
  - Weight decreased [Unknown]
  - Hot flush [Not Recovered/Not Resolved]
  - Tremor [Unknown]
  - White blood cell count decreased [Unknown]
  - Bruxism [Not Recovered/Not Resolved]

NARRATIVE: CASE EVENT DATE: 201906
